FAERS Safety Report 13034893 (Version 3)
Quarter: 2020Q1

REPORT INFORMATION
  Report Type: Spontaneous
  Country: BR (occurrence: BR)
  Receive Date: 20161216
  Receipt Date: 20200302
  Transmission Date: 20200409
  Serious: Yes (Other)
  Sender: FDA-Public Use
  Company Number: BR-AMGEN-BRASP2016177598

PATIENT
  Age: 64 Year
  Sex: Male

DRUGS (2)
  1. METHOTREXATE. [Concomitant]
     Active Substance: METHOTREXATE
     Dosage: UNK
  2. ENBREL [Suspect]
     Active Substance: ETANERCEPT
     Indication: PRODUCT USED FOR UNKNOWN INDICATION
     Dosage: UNK
     Route: 065
     Dates: start: 20160808, end: 20180501

REACTIONS (11)
  - Arthralgia [Unknown]
  - Osteoarthritis [Unknown]
  - Foot fracture [Unknown]
  - Psoriasis [Unknown]
  - Arthritis [Unknown]
  - Gait inability [Unknown]
  - Wound [Unknown]
  - Ligament sprain [Unknown]
  - Ligament rupture [Unknown]
  - Drug ineffective [Unknown]
  - Balance disorder [Unknown]

NARRATIVE: CASE EVENT DATE: 2016
